FAERS Safety Report 7292537-5 (Version None)
Quarter: 2011Q1

REPORT INFORMATION
  Report Type: 
  Country: None (occurrence: None)
  Receive Date: 20110204
  Receipt Date: 20110124
  Transmission Date: 20110831
  Serious: Yes (Hospitalization, Other)
  Sender: FDA-Public Use
  Company Number: TPA2011A00341

PATIENT
  Age: 55 Year
  Sex: Female
  Weight: 104.3273 kg

DRUGS (12)
  1. ACTOS [Suspect]
     Indication: DIABETES MELLITUS
     Dosage: 15 MG, 1 IN 1 D, PER ORAL
     Route: 048
     Dates: start: 20090501, end: 20101110
  2. LISINOPRIL [Concomitant]
  3. CITALOPRAM HYDROBROMIDE [Concomitant]
  4. BENZONATATE [Concomitant]
  5. SYMBICORT INHALER (FORMOTEROL FUMARATE, BUDESONIDE) [Concomitant]
  6. ZOLPIDEM [Concomitant]
  7. LOVASTATIN [Concomitant]
  8. METFORMIN [Concomitant]
  9. CLONAZEPAM [Concomitant]
  10. METHYLPREDNISOLONE [Concomitant]
  11. VICODIN [Concomitant]
  12. RANITIDINE [Concomitant]

REACTIONS (4)
  - BLOOD GLUCOSE INCREASED [None]
  - OEDEMA PERIPHERAL [None]
  - CHRONIC OBSTRUCTIVE PULMONARY DISEASE [None]
  - CONDITION AGGRAVATED [None]
